FAERS Safety Report 13574785 (Version 1)
Quarter: 2017Q2

REPORT INFORMATION
  Report Type: Spontaneous
  Country: IT (occurrence: IT)
  Receive Date: 20170523
  Receipt Date: 20170523
  Transmission Date: 20170830
  Serious: Yes (Other)
  Sender: FDA-Public Use
  Company Number: PHHY2017IT072519

PATIENT
  Age: 80 Year
  Sex: Female
  Weight: 62 kg

DRUGS (1)
  1. LEFLUNOMIDE. [Suspect]
     Active Substance: LEFLUNOMIDE
     Indication: RHEUMATOID ARTHRITIS
     Dosage: 20 MG, QD
     Route: 048
     Dates: start: 20141101, end: 20170123

REACTIONS (2)
  - Blood cholesterol increased [Recovered/Resolved]
  - Low density lipoprotein increased [Recovered/Resolved]

NARRATIVE: CASE EVENT DATE: 20170123
